FAERS Safety Report 14321304 (Version 3)
Quarter: 2018Q1

REPORT INFORMATION
  Report Type: Spontaneous
  Country: DE (occurrence: DE)
  Receive Date: 20171223
  Receipt Date: 20180209
  Transmission Date: 20180509
  Serious: Yes (Other)
  Sender: FDA-Public Use
  Company Number: PHHY2017DE178062

PATIENT
  Sex: Female

DRUGS (3)
  1. IODIDE [Concomitant]
     Active Substance: IODINE
     Indication: THYROID DISORDER
     Route: 065
  2. SANDOSTATIN LAR DEPOT [Suspect]
     Active Substance: OCTREOTIDE ACETATE
     Dosage: 20 MG, UNK
     Route: 065
     Dates: start: 2017
  3. SANDOSTATIN LAR DEPOT [Suspect]
     Active Substance: OCTREOTIDE ACETATE
     Indication: PRODUCT USED FOR UNKNOWN INDICATION
     Dosage: 10 MG, UNK
     Route: 065
     Dates: start: 201605, end: 2017

REACTIONS (8)
  - Concomitant disease aggravated [Unknown]
  - Bone fragmentation [Unknown]
  - Procedural complication [Unknown]
  - Throat clearing [Unknown]
  - Needle issue [Unknown]
  - Syringe issue [Unknown]
  - Osteoarthritis [Unknown]
  - Blood thyroid stimulating hormone decreased [Unknown]

NARRATIVE: CASE EVENT DATE: 2017
